FAERS Safety Report 4980241-5 (Version None)
Quarter: 2006Q2

REPORT INFORMATION
  Report Type: 
  Country: None (occurrence: None)
  Receive Date: 20060424
  Receipt Date: 20060405
  Transmission Date: 20061013
  Serious: Yes (Life-Threatening, Hospitalization)
  Sender: FDA-Public Use
  Company Number: PHBS2006TR05148

PATIENT
  Age: 65 Year
  Sex: Male

DRUGS (5)
  1. GLEEVEC [Suspect]
     Indication: GASTROINTESTINAL STROMAL TUMOUR
     Dosage: 400 MG/DAY
     Route: 048
  2. GLEEVEC [Suspect]
     Dosage: 400 MG/DAY
     Route: 048
  3. GLEEVEC [Suspect]
     Dosage: 200 MG/DAY
     Route: 048
  4. GLEEVEC [Suspect]
     Route: 048
  5. GLEEVEC [Suspect]
     Route: 048
     Dates: end: 20051001

REACTIONS (15)
  - ACUTE ABDOMEN [None]
  - ELECTROLYTE IMBALANCE [None]
  - GASTROINTESTINAL INJURY [None]
  - GENERAL PHYSICAL HEALTH DETERIORATION [None]
  - HICCUPS [None]
  - HYPONATRAEMIA [None]
  - HYPOTENSION [None]
  - IATROGENIC INJURY [None]
  - INCISIONAL HERNIA REPAIR [None]
  - INTESTINAL OPERATION [None]
  - INTESTINAL STOMA [None]
  - NAUSEA [None]
  - SEPSIS [None]
  - SMALL INTESTINAL PERFORATION [None]
  - VOMITING [None]
